FAERS Safety Report 19172750 (Version 2)
Quarter: 2021Q2

REPORT INFORMATION
  Report Type: Report from Study
  Country: US (occurrence: US)
  Receive Date: 20210423
  Receipt Date: 20210526
  Transmission Date: 20210717
  Serious: Yes (Hospitalization, Other)
  Sender: FDA-Public Use
  Company Number: US-NOVOPROD-805021

PATIENT
  Age: 71 Year
  Sex: Female

DRUGS (2)
  1. TRESIBA [Suspect]
     Active Substance: INSULIN DEGLUDEC
     Indication: DIABETES MELLITUS
     Dosage: UNK
     Route: 058
     Dates: start: 201811
  2. OZEMPIC [Suspect]
     Active Substance: SEMAGLUTIDE
     Indication: DIABETES MELLITUS
     Dosage: UNK
     Route: 058
     Dates: start: 202002

REACTIONS (11)
  - COVID-19 [Unknown]
  - Lung disorder [Unknown]
  - Blood pressure decreased [Recovered/Resolved]
  - Asthenia [Recovering/Resolving]
  - Coronary artery occlusion [Unknown]
  - Pneumonia [Unknown]
  - Liver disorder [Unknown]
  - Pulmonary oedema [Unknown]
  - Chest pain [Unknown]
  - Chest pain [Unknown]
  - Blood pressure decreased [Unknown]

NARRATIVE: CASE EVENT DATE: 2020
